FAERS Safety Report 8193815-8 (Version None)
Quarter: 2012Q1

REPORT INFORMATION
  Report Type: 
  Country: None (occurrence: None)
  Receive Date: 20120308
  Receipt Date: 20120301
  Transmission Date: 20120608
  Serious: Yes (Hospitalization)
  Sender: FDA-Public Use
  Company Number: PHHY2012IT012946

PATIENT
  Sex: Male

DRUGS (3)
  1. ZOFRAN [Concomitant]
  2. FLUDARABINE PHOSPHATE [Concomitant]
     Indication: CHRONIC LYMPHOCYTIC LEUKAEMIA
     Dosage: 50 MG, CYCLIC DOSAGE
     Route: 042
     Dates: start: 20120124, end: 20120124
  3. CYCLOPHOSPHAMIDE [Suspect]
     Indication: CHRONIC LYMPHOCYTIC LEUKAEMIA
     Dosage: 500 MG, CYCLIC DOSAGE
     Route: 042
     Dates: start: 20120124, end: 20120125

REACTIONS (3)
  - AGITATION [None]
  - DISORIENTATION [None]
  - CONFUSIONAL STATE [None]
